FAERS Safety Report 17599573 (Version 2)
Quarter: 2020Q2

REPORT INFORMATION
  Report Type: Spontaneous
  Country: SE (occurrence: SE)
  Receive Date: 20200330
  Receipt Date: 20200407
  Transmission Date: 20200713
  Serious: Yes (Death, Other)
  Sender: FDA-Public Use
  Company Number: SE-AMGEN-SWESP2020049255

PATIENT
  Age: 52 Year
  Sex: Male
  Weight: 105 kg

DRUGS (6)
  1. SERTRALINE [Concomitant]
     Active Substance: SERTRALINE HYDROCHLORIDE
     Dosage: UNK
     Dates: start: 20180101, end: 202002
  2. TRAMADOL. [Concomitant]
     Active Substance: TRAMADOL
     Dosage: UNK
     Dates: start: 20060101, end: 202002
  3. AMGEVITA [Suspect]
     Active Substance: ADALIMUMAB
     Indication: ANKYLOSING SPONDYLITIS
     Dosage: 1, Q2WK
     Route: 065
     Dates: start: 201911, end: 202002
  4. ZOLPIDEM [Concomitant]
     Active Substance: ZOLPIDEM TARTRATE
     Dosage: UNK
     Dates: start: 20180101, end: 202002
  5. PROPAVAN [Concomitant]
     Active Substance: PROPIOMAZINE
     Dosage: UNK
     Dates: start: 20191001, end: 202002
  6. POSTAFEN [MECLOZINE HYDROCHLORIDE] [Concomitant]
     Active Substance: MECLIZINE MONOHYDROCHLORIDE
     Dosage: UNK
     Dates: start: 20191001, end: 202002

REACTIONS (4)
  - Anxiety [Fatal]
  - Depression [Fatal]
  - Confusional state [Fatal]
  - Eye disorder [Fatal]

NARRATIVE: CASE EVENT DATE: 202002
